FAERS Safety Report 9137693 (Version 1)
Quarter: 2013Q1

REPORT INFORMATION
  Report Type: Spontaneous
  Country: DE (occurrence: DE)
  Receive Date: 20130304
  Receipt Date: 20130304
  Transmission Date: 20140127
  Serious: Yes (Hospitalization)
  Sender: FDA-Public Use
  Company Number: DE-ASTRAZENECA-2013SE12158

PATIENT
  Age: 16 Year
  Sex: Male

DRUGS (8)
  1. SEROQUEL [Suspect]
     Route: 048
     Dates: start: 20111028, end: 20111201
  2. SEROQUEL [Interacting]
     Route: 048
     Dates: start: 20111202
  3. ORFIRIL [Interacting]
     Route: 048
     Dates: start: 20111115
  4. ORFIRIL [Interacting]
     Route: 048
     Dates: start: 20111116
  5. ORFIRIL [Interacting]
     Route: 048
     Dates: start: 20111118, end: 20111231
  6. QUILONUM [Concomitant]
     Dates: start: 20120104, end: 20120105
  7. QUILONUM [Concomitant]
     Dates: start: 20120106, end: 20120107
  8. QUILONUM [Concomitant]
     Dates: start: 20120108

REACTIONS (2)
  - Drug interaction [Unknown]
  - Neutropenia [Recovered/Resolved]
